FAERS Safety Report 10398136 (Version 1)
Quarter: 2014Q1

REPORT INFORMATION
  Report Type: Spontaneous
  Country: US (occurrence: None)
  Receive Date: 20130815
  Receipt Date: 20130815
  Transmission Date: 20141002
  Serious: Yes (Hospitalization, Other)
  Sender: FDA-Public Use
  Company Number: ADR-2012-01197

PATIENT
  Age: 42 Year
  Sex: Female
  Weight: 38 kg

DRUGS (1)
  1. BACLOFEN INTRATHECAL (BACLOFEN INJECTION) [Suspect]
     Indication: MUSCLE SPASTICITY

REACTIONS (19)
  - Unresponsive to stimuli [None]
  - Pleural effusion [None]
  - Hypoxia [None]
  - Respiratory failure [None]
  - Apnoea [None]
  - Mental status changes [None]
  - Dyspnoea [None]
  - Bronchial secretion retention [None]
  - Cough [None]
  - Syncope [None]
  - Pain [None]
  - Oxygen saturation decreased [None]
  - Bradycardia [None]
  - Aspiration [None]
  - Proteus infection [None]
  - Syringomyelia [None]
  - Asthenia [None]
  - Muscle tightness [None]
  - Muscular weakness [None]
